FAERS Safety Report 13911129 (Version 1)
Quarter: 2017Q3

REPORT INFORMATION
  Report Type: Spontaneous
  Country: US (occurrence: None)
  Receive Date: 20170828
  Receipt Date: 20170828
  Transmission Date: 20171127
  Serious: Yes (Hospitalization, Other)
  Sender: FDA-Public Use
  Company Number: None

PATIENT
  Age: 73 Year
  Sex: Female
  Weight: 58.97 kg

DRUGS (15)
  1. HYDROCHLOROTHIAZIDE. [Concomitant]
     Active Substance: HYDROCHLOROTHIAZIDE
  2. ATENOLOL. [Concomitant]
     Active Substance: ATENOLOL
  3. CANE [Concomitant]
  4. LORATADINE. [Concomitant]
     Active Substance: LORATADINE
  5. CHONDRITIN [Concomitant]
  6. CALCIUM WITH VIT D [Concomitant]
  7. MELOXICAM. [Concomitant]
     Active Substance: MELOXICAM
  8. CALACE [Concomitant]
  9. GLUCOSAMINE [Concomitant]
     Active Substance: GLUCOSAMINE
  10. TUMERIC [Concomitant]
     Active Substance: HERBALS\TURMERIC
  11. ATORVASTATIN [Concomitant]
     Active Substance: ATORVASTATIN
  12. BABY ASPIRIN [Concomitant]
     Active Substance: ASPIRIN
  13. WHEELCHAIR [Concomitant]
     Active Substance: DEVICE
  14. FOSAMAX [Suspect]
     Active Substance: ALENDRONATE SODIUM
     Indication: OSTEOPOROSIS
     Route: 048
  15. WALKER SEAT [Concomitant]
     Active Substance: DEVICE

REACTIONS (2)
  - Femur fracture [None]
  - Therapy cessation [None]

NARRATIVE: CASE EVENT DATE: 20160319
